FAERS Safety Report 20089295 (Version 3)
Quarter: 2021Q4

REPORT INFORMATION
  Report Type: Spontaneous
  Country: ML (occurrence: ML)
  Receive Date: 20211119
  Receipt Date: 20211227
  Transmission Date: 20220303
  Serious: Yes (Death, Hospitalization)
  Sender: FDA-Public Use
  Company Number: ML-NOVARTISPH-NVSC2021ML263595

PATIENT
  Age: 35 Year
  Sex: Male
  Weight: 70 kg

DRUGS (2)
  1. GLIVEC [Suspect]
     Active Substance: IMATINIB MESYLATE
     Indication: Chronic myeloid leukaemia
     Dosage: 400 MG, BID
     Route: 065
     Dates: start: 20180516, end: 20211112
  2. GLIVEC [Suspect]
     Active Substance: IMATINIB MESYLATE
     Dosage: 400 MG, BID
     Route: 065
     Dates: start: 20180516, end: 20211112

REACTIONS (5)
  - Pallor [Fatal]
  - Altered state of consciousness [Fatal]
  - Asthenia [Fatal]
  - Abdominal pain [Fatal]
  - Swelling face [Fatal]

NARRATIVE: CASE EVENT DATE: 20211112
